FAERS Safety Report 12811002 (Version 2)
Quarter: 2016Q4

REPORT INFORMATION
  Report Type: Spontaneous
  Country: JP (occurrence: JP)
  Receive Date: 20161005
  Receipt Date: 20161115
  Transmission Date: 20170207
  Serious: Yes (Other)
  Sender: FDA-Public Use
  Company Number: JP-PFIZER INC-2016460507

PATIENT
  Age: 68 Year
  Sex: Female

DRUGS (5)
  1. LYRICA [Suspect]
     Active Substance: PREGABALIN
     Dosage: 75 MG TWICE DAILY (AFTER BREAKFAST AND BEFORE SLEEPING)
     Route: 048
     Dates: start: 20160927, end: 20160927
  2. PANALDINE [Concomitant]
     Active Substance: TICLOPIDINE HYDROCHLORIDE
     Dosage: UNK
     Route: 048
     Dates: start: 20110720
  3. LYRICA [Suspect]
     Active Substance: PREGABALIN
     Indication: PAIN
     Dosage: 75 MG BEFORE SLEEPING
     Route: 048
     Dates: start: 20160926, end: 20160926
  4. CEROCRAL [Concomitant]
     Active Substance: IFENPRODIL
     Dosage: UNK
     Route: 048
     Dates: start: 20110811
  5. EPADEL-S [Concomitant]
     Active Substance: ICOSAPENT ETHYL
     Dosage: UNK
     Route: 048
     Dates: start: 20110811

REACTIONS (5)
  - Haemorrhage subcutaneous [Unknown]
  - Asthenia [Unknown]
  - Dizziness [Unknown]
  - Malaise [Unknown]
  - Somnolence [Unknown]

NARRATIVE: CASE EVENT DATE: 20160927
